FAERS Safety Report 4598762-6 (Version None)
Quarter: 2005Q1

REPORT INFORMATION
  Report Type: 
  Country: None (occurrence: None)
  Receive Date: 20050304
  Receipt Date: 20050225
  Transmission Date: 20050727
  Serious: Yes (Death, Hospitalization, Other)
  Sender: FDA-Public Use
  Company Number: PHFR2005GB01009

PATIENT
  Age: 50 Year
  Sex: Female

DRUGS (2)
  1. ZOMETA [Suspect]
     Indication: MULTIPLE MYELOMA
     Route: 065
     Dates: start: 20040901, end: 20041013
  2. THALIDOMIDE [Concomitant]
     Route: 065

REACTIONS (3)
  - DEATH [None]
  - HYPOCALCAEMIA [None]
  - RENAL FAILURE [None]
